FAERS Safety Report 17191769 (Version 1)
Quarter: 2019Q4

REPORT INFORMATION
  Report Type: Spontaneous
  Country: FR (occurrence: FR)
  Receive Date: 20191223
  Receipt Date: 20191223
  Transmission Date: 20200122
  Serious: Yes (Hospitalization)
  Sender: FDA-Public Use
  Company Number: FR-PFIZER INC-2019545229

PATIENT
  Age: 1 Day
  Sex: Female

DRUGS (6)
  1. NORSET [Concomitant]
     Active Substance: MIRTAZAPINE
     Dosage: UNK
  2. LAMICTAL [Concomitant]
     Active Substance: LAMOTRIGINE
     Dosage: UNK
  3. XEROQUEL [Concomitant]
     Active Substance: QUETIAPINE FUMARATE
     Dosage: UNK
  4. STILNOX [Suspect]
     Active Substance: ZOLPIDEM TARTRATE
     Indication: DRUG USE DISORDER
     Dosage: 1 DF, 1X/DAY
     Route: 064
     Dates: start: 20180918, end: 20190502
  5. XANAX [Suspect]
     Active Substance: ALPRAZOLAM
     Indication: DRUG USE DISORDER
     Dosage: 1 DF, AS NEEDED
     Route: 064
     Dates: start: 20180918, end: 20190502
  6. VALIUM [Suspect]
     Active Substance: DIAZEPAM
     Indication: DRUG WITHDRAWAL MAINTENANCE THERAPY
     Dosage: 150 MG, 1X/DAY
     Route: 064
     Dates: start: 201903, end: 20190502

REACTIONS (3)
  - Withdrawal syndrome [Recovered/Resolved]
  - Exposure during pregnancy [Unknown]
  - Poisoning [Recovered/Resolved]

NARRATIVE: CASE EVENT DATE: 201905
